FAERS Safety Report 5768206-7 (Version None)
Quarter: 2008Q2

REPORT INFORMATION
  Report Type: 
  Country: None (occurrence: None)
  Receive Date: 20080612
  Receipt Date: 20080605
  Transmission Date: 20081010
  Serious: Yes (Hospitalization)
  Sender: FDA-Public Use
  Company Number: ES-MERCK-0806USA01881

PATIENT
  Age: 56 Year
  Sex: Female

DRUGS (7)
  1. MODURETIC 5-50 [Suspect]
     Route: 048
     Dates: start: 20070101
  2. ATORVASTATIN CALCIUM [Suspect]
     Route: 065
     Dates: start: 20070101
  3. DEPAMIDE [Suspect]
     Route: 065
     Dates: start: 20070101
  4. IDALPREM [Suspect]
     Route: 065
     Dates: start: 20071001, end: 20080401
  5. SEROQUEL [Suspect]
     Route: 065
     Dates: start: 20071001, end: 20080401
  6. XENICAL [Suspect]
     Route: 065
     Dates: start: 20071001
  7. OXCARBAZEPINE [Suspect]
     Indication: DEPRESSION
     Route: 048
     Dates: start: 20070401, end: 20080301

REACTIONS (2)
  - DEPRESSED LEVEL OF CONSCIOUSNESS [None]
  - HYPONATRAEMIA [None]
